FAERS Safety Report 18687387 (Version 1)
Quarter: 2020Q4

REPORT INFORMATION
  Report Type: Spontaneous
  Country: BR (occurrence: BR)
  Receive Date: 20201231
  Receipt Date: 20201231
  Transmission Date: 20210114
  Serious: Yes (Other)
  Sender: FDA-Public Use
  Company Number: BR-SAMSUNG BIOEPIS-SB-2020-38345

PATIENT
  Age: 73 Year
  Sex: Female
  Weight: 37 kg

DRUGS (1)
  1. BRENZYS [Suspect]
     Active Substance: ETANERCEPT
     Indication: PRODUCT USED FOR UNKNOWN INDICATION
     Dosage: UNKNOWN
     Route: 065

REACTIONS (15)
  - Haemorrhage [Unknown]
  - Cataract [Unknown]
  - Osteoporosis [Unknown]
  - Finger deformity [Unknown]
  - Arthritis [Unknown]
  - Drug ineffective [Unknown]
  - Fall [Unknown]
  - Spinal fracture [Unknown]
  - Mass [Unknown]
  - Lacrimation increased [Unknown]
  - Vision blurred [Unknown]
  - Contusion [Unknown]
  - Hypoaesthesia [Unknown]
  - Herpes virus infection [Unknown]
  - Pain [Unknown]
